FAERS Safety Report 9241240 (Version 1)
Quarter: 2013Q1

REPORT INFORMATION
  Report Type: Spontaneous
  Country: US (occurrence: None)
  Receive Date: 20121113
  Receipt Date: 20121113
  Transmission Date: 20140127
  Serious: Yes (Other)
  Sender: FDA-Public Use
  Company Number: PHEH2011US00942

PATIENT
  Age: 58 Year
  Sex: Female

DRUGS (9)
  1. TRILEPTAL [Suspect]
  2. KEPRA [Suspect]
  3. NEURONTIN (GABAPENTIN) [Suspect]
  4. TOPAMAX (TOPIRAMATE) [Concomitant]
  5. OXYBUTYNIN (OXYBUTYNIN) [Concomitant]
  6. PRILOSEC [Concomitant]
  7. HYDROCHLOROTHIAZIDE (HYDROCHLOROTHIAZIDE) [Concomitant]
  8. VICODIN (HYDROCODONE BITARTRATE, PARACETAMOL) [Concomitant]
  9. SIMVASTATIN (SIMVASTATIN) [Concomitant]

REACTIONS (1)
  - Convulsion [None]
